FAERS Safety Report 5275151-2 (Version None)
Quarter: 2007Q1

REPORT INFORMATION
  Report Type: 
  Country: None (occurrence: None)
  Receive Date: 20070326
  Receipt Date: 20070313
  Transmission Date: 20070707
  Serious: Yes (Hospitalization, Other)
  Sender: FDA-Public Use
  Company Number: IL-NOVOPROD-261115

PATIENT
  Age: 32 Year
  Sex: Male
  Weight: 60 kg

DRUGS (7)
  1. NOVOSEVEN [Suspect]
     Dosage: 7.2 MG, UNK
     Route: 042
     Dates: start: 20070201, end: 20070201
  2. RED BLOOD CELLS [Concomitant]
     Dosage: 9 U, UNK
     Route: 042
  3. RED BLOOD CELLS [Concomitant]
     Dosage: 3 U, UNK
     Route: 042
     Dates: start: 20070226
  4. FRESH FROZEN PLASMA [Concomitant]
     Dosage: 15 U, UNK
     Route: 042
  5. FRESH FROZEN PLASMA [Concomitant]
     Dosage: 4 U, UNK
     Route: 042
     Dates: start: 20070226
  6. PLATELETS [Concomitant]
     Dosage: 16 U, UNK
     Route: 042
  7. CRYOPRECIPITATES [Concomitant]
     Dosage: 39 U, UNK
     Route: 042

REACTIONS (6)
  - CARDIAC TAMPONADE [None]
  - CARDIOGENIC SHOCK [None]
  - DEEP VEIN THROMBOSIS [None]
  - HAEMORRHAGE [None]
  - HEART INJURY [None]
  - JUGULAR VEIN THROMBOSIS [None]
